FAERS Safety Report 5625978-X (Version None)
Quarter: 2008Q1

REPORT INFORMATION
  Report Type: 
  Country: None (occurrence: None)
  Receive Date: 20080214
  Receipt Date: 20080208
  Transmission Date: 20080703
  Serious: Yes (Other)
  Sender: FDA-Public Use
  Company Number: PHNU2005DE02186

PATIENT
  Sex: Female
  Weight: 60 kg

DRUGS (4)
  1. AREDIA [Suspect]
     Indication: PLASMACYTOMA
     Dosage: 30 MG, ONCE/SINGLE
     Route: 042
     Dates: start: 19960801, end: 19960801
  2. AREDIA [Suspect]
     Dosage: 60 MG, ONCE/SINGLE
     Route: 042
     Dates: start: 19960901, end: 19960901
  3. AREDIA [Suspect]
     Dosage: 90 MG, QMO
     Route: 042
     Dates: start: 19961001, end: 19961101
  4. AREDIA [Suspect]
     Dosage: 90 MG, QMO
     Route: 042
     Dates: start: 19990801, end: 20040701

REACTIONS (4)
  - OSTEONECROSIS [None]
  - PAIN IN JAW [None]
  - SEQUESTRECTOMY [None]
  - WOUND CLOSURE [None]
